FAERS Safety Report 8040828-2 (Version None)
Quarter: 2012Q1

REPORT INFORMATION
  Report Type: 
  Country: None (occurrence: None)
  Receive Date: 20120112
  Receipt Date: 20120105
  Transmission Date: 20120608
  Serious: Yes (Hospitalization, Other)
  Sender: FDA-Public Use
  Company Number: US-AMGEN-USASP2011068180

PATIENT
  Age: 38 Year
  Sex: Female

DRUGS (1)
  1. ENBREL [Suspect]
     Indication: RHEUMATOID ARTHRITIS
     Dosage: 50 MG, QWK
     Dates: start: 20010601

REACTIONS (7)
  - FORMICATION [None]
  - HEADACHE [None]
  - SINUSITIS [None]
  - UTERINE HAEMORRHAGE [None]
  - TINNITUS [None]
  - DRY EYE [None]
  - INJECTION SITE PAIN [None]
